FAERS Safety Report 6929902-9 (Version None)
Quarter: 2010Q3

REPORT INFORMATION
  Report Type: 
  Country: None (occurrence: None)
  Receive Date: 20100818
  Receipt Date: 20100811
  Transmission Date: 20110219
  Serious: Yes (Death, Other)
  Sender: FDA-Public Use
  Company Number: IT-CELGENEUS-083-20785-06101084

PATIENT

DRUGS (5)
  1. THALOMID [Suspect]
     Indication: MULTIPLE MYELOMA
     Route: 065
  2. DEXAMETHASONE [Suspect]
     Indication: MULTIPLE MYELOMA
     Route: 048
  3. DOXORUBICIN HCL [Suspect]
     Indication: MULTIPLE MYELOMA
     Dosage: ON DAY 1
     Route: 051
  4. WARFARIN SODIUM [Concomitant]
     Indication: THROMBOSIS PROPHYLAXIS
     Route: 065
  5. CYCLOPHOSPHAMIDE [Concomitant]
     Indication: ANTIBIOTIC PROPHYLAXIS
     Route: 065

REACTIONS (15)
  - CARDIAC FAILURE [None]
  - CARDIOTOXICITY [None]
  - CONSTIPATION [None]
  - EMBOLISM VENOUS [None]
  - FATIGUE [None]
  - INFECTION [None]
  - MULTI-ORGAN FAILURE [None]
  - NEUROPATHY PERIPHERAL [None]
  - NEUTROPENIA [None]
  - OEDEMA [None]
  - PULMONARY EMBOLISM [None]
  - PYREXIA [None]
  - SEPTIC SHOCK [None]
  - THROMBOCYTOPENIA [None]
  - TREMOR [None]
